FAERS Safety Report 14663285 (Version 3)
Quarter: 2018Q3

REPORT INFORMATION
  Report Type: Spontaneous
  Country: JP (occurrence: JP)
  Receive Date: 20180321
  Receipt Date: 20180904
  Transmission Date: 20181010
  Serious: Yes (Hospitalization, Other)
  Sender: FDA-Public Use
  Company Number: JP-SUN PHARMACEUTICAL INDUSTRIES LTD-2018R1-167217

PATIENT
  Age: 65 Year
  Sex: Female

DRUGS (2)
  1. LITHIUM. [Suspect]
     Active Substance: LITHIUM
     Indication: BIPOLAR I DISORDER
     Dosage: 600 MG, DAILY
     Route: 065
  2. AZILSARTAN [Interacting]
     Active Substance: AZILSARTAN KAMEDOXOMIL
     Indication: HYPERTENSION
     Dosage: UNK UNK, DAILY
     Route: 065

REACTIONS (10)
  - Drug interaction [Unknown]
  - General physical health deterioration [Unknown]
  - Decreased appetite [Unknown]
  - Diarrhoea [Unknown]
  - Toxicity to various agents [Unknown]
  - Action tremor [Unknown]
  - Myoclonus [Unknown]
  - Ataxia [Unknown]
  - Altered state of consciousness [Unknown]
  - Constipation [Unknown]
